FAERS Safety Report 4566499-5 (Version None)
Quarter: 2005Q1

REPORT INFORMATION
  Report Type: 
  Country: None (occurrence: None)
  Receive Date: 20050128
  Receipt Date: 20050112
  Transmission Date: 20050727
  Serious: Yes (Hospitalization)
  Sender: FDA-Public Use
  Company Number: 2005BI000807

PATIENT
  Age: 31 Year
  Sex: Female
  Weight: 64.8644 kg

DRUGS (1)
  1. AVONEX [Suspect]
     Indication: MULTIPLE SCLEROSIS
     Dosage: 30 UG; QW; IM
     Route: 030
     Dates: start: 20000801, end: 20011001

REACTIONS (9)
  - BLOOD PRESSURE DECREASED [None]
  - BODY TEMPERATURE FLUCTUATION [None]
  - CARDIAC VALVE DISEASE [None]
  - CARDIOMYOPATHY [None]
  - CHEST PAIN [None]
  - COGNITIVE DISORDER [None]
  - DYSPNOEA [None]
  - HYPOAESTHESIA [None]
  - SYNCOPE [None]
